FAERS Safety Report 16908739 (Version 1)
Quarter: 2019Q4

REPORT INFORMATION
  Report Type: Spontaneous
  Country: US (occurrence: US)
  Receive Date: 20191011
  Receipt Date: 20191011
  Transmission Date: 20200122
  Serious: Yes (Other)
  Sender: FDA-Public Use
  Company Number: US-HIKMA PHARMACEUTICALS USA INC.-US-H14001-19-49314

PATIENT
  Age: 73 Year
  Sex: Female

DRUGS (12)
  1. DACARBAZINE. [Suspect]
     Active Substance: DACARBAZINE
     Indication: HODGKIN^S DISEASE
     Dosage: ()CYCLICAL
     Route: 065
  2. INFLIXIMAB [Concomitant]
     Active Substance: INFLIXIMAB
     Indication: SARCOIDOSIS
     Dosage: INCREASED TO 5MG/KG EVERY 8 WEEKS.
     Route: 065
  3. INFLIXIMAB [Concomitant]
     Active Substance: INFLIXIMAB
     Indication: SARCOIDOSIS
     Dosage: WITH REPEAT DOSES EVERY 8 WEEKS THEREAFTER
  4. VINBLASTINE [Suspect]
     Active Substance: VINBLASTINE
     Indication: HODGKIN^S DISEASE
     Dosage: ()CYCLICAL
     Route: 065
  5. PREDNISONE. [Concomitant]
     Active Substance: PREDNISONE
     Indication: SARCOIDOSIS
     Dosage: WITH A SLOW TAPER ()
     Route: 065
  6. DOXORUBICIN [Suspect]
     Active Substance: DOXORUBICIN
     Indication: HODGKIN^S DISEASE
     Dosage: ()CYCLICAL
     Route: 065
  7. PREDNISONE. [Concomitant]
     Active Substance: PREDNISONE
     Indication: SARCOIDOSIS
  8. PREDNISONE. [Concomitant]
     Active Substance: PREDNISONE
     Indication: SARCOIDOSIS
  9. INFLIXIMAB [Concomitant]
     Active Substance: INFLIXIMAB
     Indication: SARCOIDOSIS
     Dosage: LOADING DOSES OF INFLIXIMAB, 3MG/KG, AT WEEKS 0, 2, AND 6
  10. BLEOMYCIN [Suspect]
     Active Substance: BLEOMYCIN SULFATE
     Indication: HODGKIN^S DISEASE
     Dosage: ()CYCLICAL
     Route: 065
  11. ZOLEDRONIC ACID [Concomitant]
     Active Substance: ZOLEDRONIC ACID
     Indication: PRODUCT USED FOR UNKNOWN INDICATION
     Dosage: ()
     Route: 065
  12. PREDNISONE. [Concomitant]
     Active Substance: PREDNISONE
     Indication: SARCOIDOSIS
     Dosage: REPEATED ATTEMPTS TO TAPER STEROIDS REMAINED UNSUCCESSFUL. TAPER WAS INITIATED ()

REACTIONS (1)
  - Neutropenia [Unknown]
